FAERS Safety Report 4803442-5 (Version None)
Quarter: 2005Q4

REPORT INFORMATION
  Report Type: 
  Country: None (occurrence: None)
  Receive Date: 20051019
  Receipt Date: 20041108
  Transmission Date: 20060501
  Serious: Yes (Hospitalization, Other)
  Sender: FDA-Public Use
  Company Number: PHEH2004US11990

PATIENT
  Age: 56 Year
  Sex: Female
  Weight: 38 kg

DRUGS (6)
  1. AREDIA [Suspect]
     Indication: MULTIPLE MYELOMA
     Dosage: 90 MG, QMO
     Dates: start: 20030127, end: 20040801
  2. ASPIRIN [Concomitant]
     Dosage: 81 MG, UNK
     Dates: end: 20040803
  3. M.V.I. [Concomitant]
  4. VINCRISTINE + ADRIAMYCIN + DEXAMETHASONE [Concomitant]
     Indication: MULTIPLE MYELOMA
     Dosage: 4 COURSES
  5. LORCET-HD [Concomitant]
     Indication: PAIN
     Dosage: 5/500
  6. AUTOLOGOUS TRANSPLANTATION [Concomitant]
     Dosage: STEM CELL TRANSPLANT
     Dates: start: 20030501, end: 20030501

REACTIONS (49)
  - ABDOMINAL DISTENSION [None]
  - ACTIVITIES OF DAILY LIVING IMPAIRED [None]
  - AGITATION [None]
  - ALPHA HAEMOLYTIC STREPTOCOCCAL INFECTION [None]
  - ALVEOLOPLASTY [None]
  - ANAEMIA [None]
  - BLOOD GLUCOSE INCREASED [None]
  - BLOOD POTASSIUM DECREASED [None]
  - BLOOD PRESSURE DECREASED [None]
  - BLOODY DISCHARGE [None]
  - BONE DEBRIDEMENT [None]
  - BONE DISORDER [None]
  - CONFUSIONAL STATE [None]
  - DIARRHOEA [None]
  - EATING DISORDER SYMPTOM [None]
  - FISTULA [None]
  - FUNGAL INFECTION [None]
  - HYPOXIA [None]
  - IMPAIRED HEALING [None]
  - INDURATION [None]
  - INFECTION [None]
  - INFLAMMATION [None]
  - INJURY [None]
  - MANDIBULECTOMY [None]
  - MENTAL IMPAIRMENT [None]
  - MUSCULOSKELETAL STIFFNESS [None]
  - MYELOMA RECURRENCE [None]
  - NAUSEA [None]
  - OEDEMA PERIPHERAL [None]
  - OPEN WOUND [None]
  - ORAL SURGERY [None]
  - OSTEOLYSIS [None]
  - OSTEOMYELITIS ACUTE [None]
  - OSTEONECROSIS [None]
  - PAIN [None]
  - PATHOLOGICAL FRACTURE [None]
  - PHYSICAL DISABILITY [None]
  - PLASMACYTOMA [None]
  - POSTOPERATIVE WOUND COMPLICATION [None]
  - PURULENT DISCHARGE [None]
  - SINUS OPERATION [None]
  - STAPHYLOCOCCAL INFECTION [None]
  - SWELLING [None]
  - TOOTH EXTRACTION [None]
  - TOOTH LOSS [None]
  - VOMITING [None]
  - WEIGHT DECREASED [None]
  - WOUND ABSCESS [None]
  - WOUND DRAINAGE [None]
